FAERS Safety Report 8990577 (Version 1)
Quarter: 2012Q4

REPORT INFORMATION
  Report Type: Report from Study
  Country: DK (occurrence: DK)
  Receive Date: 20121228
  Receipt Date: 20121228
  Transmission Date: 20130627
  Serious: Yes (Hospitalization)
  Sender: FDA-Public Use
  Company Number: DK-BAXTER-2012BAX028806

PATIENT
  Age: 72 Year
  Sex: Female
  Weight: 39 kg

DRUGS (18)
  1. SENDOXAN [Suspect]
     Indication: B-CELL LYMPHOMA
     Route: 042
     Dates: start: 20101007
  2. SENDOXAN [Suspect]
     Route: 042
     Dates: start: 20101104
  3. SENDOXAN [Suspect]
     Route: 042
     Dates: start: 20101202
  4. RITUXIMAB [Suspect]
     Indication: B-CELL LYMPHOMA
     Route: 042
     Dates: start: 20101007
  5. RITUXIMAB [Suspect]
     Route: 042
     Dates: start: 20101104
  6. RITUXIMAB [Suspect]
     Route: 042
     Dates: start: 20101202
  7. PREDNISONE [Suspect]
     Indication: B-CELL LYMPHOMA
     Route: 048
     Dates: start: 20101007
  8. PREDNISONE [Suspect]
     Route: 048
     Dates: start: 20101104
  9. PREDNISONE [Suspect]
     Route: 048
     Dates: start: 20101202
  10. DOXORUBICIN [Suspect]
     Indication: B-CELL LYMPHOMA
     Route: 042
     Dates: start: 20101007
  11. DOXORUBICIN [Suspect]
     Route: 042
     Dates: start: 20101104
  12. DOXORUBICIN [Suspect]
     Route: 042
     Dates: start: 20101202
  13. VINCRISTINE [Suspect]
     Indication: B-CELL LYMPHOMA
     Route: 042
     Dates: start: 20101007
  14. VINCRISTINE [Suspect]
     Route: 042
     Dates: start: 20101104
  15. VINCRISTINE [Suspect]
     Route: 042
     Dates: start: 20101202
  16. GRANULOCYTE COLONY STIMULATING FACTOR [Suspect]
     Indication: B-CELL LYMPHOMA
     Route: 042
     Dates: start: 20101008
  17. GRANULOCYTE COLONY STIMULATING FACTOR [Suspect]
     Route: 042
     Dates: start: 20101105
  18. GRANULOCYTE COLONY STIMULATING FACTOR [Suspect]
     Route: 042
     Dates: start: 20101203

REACTIONS (5)
  - Diarrhoea [Recovered/Resolved]
  - Anaemia [Recovered/Resolved]
  - Dehydration [Unknown]
  - Diarrhoea [Not Recovered/Not Resolved]
  - Anaemia [Recovered/Resolved]
